FAERS Safety Report 16230360 (Version 3)
Quarter: 2020Q1

REPORT INFORMATION
  Report Type: Report from Study
  Country: US (occurrence: US)
  Receive Date: 20190423
  Receipt Date: 20200218
  Transmission Date: 20200409
  Serious: No
  Sender: FDA-Public Use
  Company Number: PHEH2019US017058

PATIENT
  Age: 37 Year
  Sex: Male

DRUGS (2)
  1. COSENTYX [Suspect]
     Active Substance: SECUKINUMAB
     Indication: PSORIASIS
     Dosage: 150 MG, QW (ONCE WEEKLY FOR 5 WEEKS)
     Route: 058
     Dates: start: 20190404
  2. COSENTYX [Suspect]
     Active Substance: SECUKINUMAB
     Dosage: 300 MG, Q4W (ONCE EVERY 4 WEEKS)
     Route: 058

REACTIONS (5)
  - Arthralgia [Unknown]
  - Incorrect dose administered [Unknown]
  - Psoriasis [Unknown]
  - Myalgia [Unknown]
  - Product dose omission [Unknown]

NARRATIVE: CASE EVENT DATE: 20190404
